FAERS Safety Report 5869329-4 (Version None)
Quarter: 2008Q3

REPORT INFORMATION
  Report Type: 
  Country: None (occurrence: None)
  Receive Date: 20080828
  Receipt Date: 20020204
  Transmission Date: 20090109
  Serious: Yes (Hospitalization)
  Sender: FDA-Public Use
  Company Number: DSA_21570_2002

PATIENT
  Age: 23 Year
  Sex: Male
  Weight: 79 kg

DRUGS (2)
  1. KEIMAX [Suspect]
     Indication: PNEUMONIA
     Dosage: 400 MG DAILY PO
     Route: 048
     Dates: start: 20011105, end: 20011108
  2. METRONIDAZOLE [Suspect]
     Indication: PNEUMONIA
     Dosage: 500 MD TID IV
     Route: 042
     Dates: start: 20011108, end: 20011111

REACTIONS (1)
  - STEVENS-JOHNSON SYNDROME [None]
